FAERS Safety Report 13975924 (Version 2)
Quarter: 2017Q4

REPORT INFORMATION
  Report Type: Spontaneous
  Country: FR (occurrence: FR)
  Receive Date: 20170915
  Receipt Date: 20171018
  Transmission Date: 20180321
  Serious: Yes (Other)
  Sender: FDA-Public Use
  Company Number: FR-009507513-1709FRA006539

PATIENT
  Age: 41 Year
  Sex: Female

DRUGS (2)
  1. COSENTYX [Suspect]
     Active Substance: SECUKINUMAB
     Indication: PSORIASIS
     Dosage: 10.7143, 150 MG, 2 TIMES IN 4 WEEKS
     Route: 058
     Dates: start: 20170319
  2. NEXPLANON [Suspect]
     Active Substance: ETONOGESTREL
     Indication: CONTRACEPTION
     Dosage: 1 DF, UNK
     Route: 058
     Dates: start: 20170316, end: 20170504

REACTIONS (3)
  - Implant site abscess [Recovered/Resolved]
  - Patient-device incompatibility [Recovered/Resolved]
  - Impaired healing [Recovered/Resolved with Sequelae]

NARRATIVE: CASE EVENT DATE: 2017
